FAERS Safety Report 5097742-4 (Version None)
Quarter: 2006Q3

REPORT INFORMATION
  Report Type: 
  Country: None (occurrence: None)
  Receive Date: 20060901
  Receipt Date: 20060820
  Transmission Date: 20061208
  Serious: Yes (Other)
  Sender: FDA-Public Use
  Company Number: 2006101223

PATIENT
  Age: 45 Year
  Sex: Female
  Weight: 45.3597 kg

DRUGS (13)
  1. LYRICA [Suspect]
     Indication: PAIN IN EXTREMITY
     Dosage: 150 MG (50 MG, 3 IN 1 D), ORAL
     Route: 048
     Dates: start: 20060801
  2. PREDNISONE TAB [Suspect]
     Indication: WEGENER'S GRANULOMATOSIS
     Dosage: 50 MG (50 MG, 1 IN 1 D), ORAL
     Route: 048
  3. PREVACID [Concomitant]
  4. SKELAXIN [Concomitant]
  5. TRAMADOL HCL [Concomitant]
  6. ESTROGENIC SUBSTANCE [Concomitant]
  7. BACTRIM [Concomitant]
  8. AMBIEN [Concomitant]
  9. CALCIUM WITH VITAMIN D (CALCIUM PHOSPHATE, CALCIUM SODIUM LACTATE, ERG [Concomitant]
  10. CYMBALTA [Concomitant]
  11. VITAMIN D [Concomitant]
  12. PROMETHAZINE [Concomitant]
  13. ALBUTEROL [Concomitant]

REACTIONS (11)
  - ARTHRALGIA [None]
  - ASTHENIA [None]
  - FATIGUE [None]
  - HYPERPHAGIA [None]
  - INTRAOCULAR PRESSURE TEST ABNORMAL [None]
  - MUSCLE SPASMS [None]
  - MYALGIA [None]
  - PAIN IN EXTREMITY [None]
  - VISION BLURRED [None]
  - VISUAL ACUITY REDUCED [None]
  - WEIGHT INCREASED [None]
